FAERS Safety Report 15238203 (Version 1)
Quarter: 2018Q3

REPORT INFORMATION
  Report Type: Spontaneous
  Country: US (occurrence: US)
  Receive Date: 20180710
  Receipt Date: 20180710
  Transmission Date: 20181010
  Serious: No
  Sender: FDA-Public Use
  Company Number: None

PATIENT
  Age: 3 Year

DRUGS (1)
  1. PARACETAMOL\CODEINE [Suspect]
     Active Substance: ACETAMINOPHEN\CODEINE PHOSPHATE
     Dosage: ?          OTHER DOSE:150 MG/50 MG;?

REACTIONS (1)
  - CYP2D6 polymorphism [None]
